FAERS Safety Report 22125371 (Version 1)
Quarter: 2023Q1

REPORT INFORMATION
  Report Type: Spontaneous
  Country: US (occurrence: None)
  Receive Date: 20230322
  Receipt Date: 20230322
  Transmission Date: 20230418
  Serious: Yes (Hospitalization, Other)
  Sender: FDA-Public Use
  Company Number: 2023A065576

PATIENT
  Age: 69 Year
  Sex: Female
  Weight: 87.5 kg

DRUGS (41)
  1. FULVESTRANT [Suspect]
     Active Substance: FULVESTRANT
     Indication: Product used for unknown indication
     Dosage: ON CYCLE 1 DAYS 1, 15, 29 FOLLOWED BY ONCE Q28 DAYS
     Route: 030
     Dates: start: 20221201, end: 20221206
  2. CABOMETYX [Suspect]
     Active Substance: CABOZANTINIB S-MALATE
     Indication: Renal cancer
     Route: 048
     Dates: start: 20220119, end: 20220503
  3. CABOMETYX [Suspect]
     Active Substance: CABOZANTINIB S-MALATE
     Indication: Renal cancer
     Route: 048
     Dates: start: 20220119, end: 20220503
  4. CABOMETYX [Suspect]
     Active Substance: CABOZANTINIB S-MALATE
     Indication: Renal cancer
     Route: 048
     Dates: end: 20230108
  5. CABOMETYX [Suspect]
     Active Substance: CABOZANTINIB S-MALATE
     Indication: Renal cancer
     Route: 048
     Dates: end: 20230108
  6. CABOMETYX [Suspect]
     Active Substance: CABOZANTINIB S-MALATE
     Indication: Renal cancer
     Route: 048
     Dates: start: 20230126
  7. CABOMETYX [Suspect]
     Active Substance: CABOZANTINIB S-MALATE
     Indication: Renal cancer
     Route: 048
     Dates: start: 20230126
  8. OPDIVO [Suspect]
     Active Substance: NIVOLUMAB
     Indication: Renal cancer
     Route: 042
     Dates: start: 20220119, end: 20220503
  9. OPDIVO [Suspect]
     Active Substance: NIVOLUMAB
     Indication: Neoplasm malignant
     Route: 042
     Dates: start: 20220119, end: 20220503
  10. OPDIVO [Suspect]
     Active Substance: NIVOLUMAB
     Indication: Renal cancer
     Route: 042
     Dates: start: 20220524, end: 20230108
  11. OPDIVO [Suspect]
     Active Substance: NIVOLUMAB
     Indication: Neoplasm malignant
     Route: 042
     Dates: start: 20220524, end: 20230108
  12. ASPIRIN [Concomitant]
     Active Substance: ASPIRIN
  13. LOVENOX [Concomitant]
     Active Substance: ENOXAPARIN SODIUM
  14. LIPITOR [Concomitant]
     Active Substance: ATORVASTATIN CALCIUM
  15. DOTAREM [Concomitant]
     Active Substance: GADOTERATE MEGLUMINE
  16. ATIVAN [Concomitant]
     Active Substance: LORAZEPAM
  17. SODIUM CHLORIDE [Concomitant]
     Active Substance: SODIUM CHLORIDE
  18. ISOVUE [Concomitant]
     Active Substance: IOPAMIDOL
  19. TNKASE [Concomitant]
     Active Substance: TENECTEPLASE
  20. XANAX [Concomitant]
     Active Substance: ALPRAZOLAM
  21. PREMARIN [Concomitant]
     Active Substance: ESTROGENS, CONJUGATED
  22. COZAAR [Concomitant]
     Active Substance: LOSARTAN POTASSIUM
  23. TYLENOL [Concomitant]
     Active Substance: ACETAMINOPHEN
  24. COLACE [Concomitant]
     Active Substance: DOCUSATE SODIUM
  25. MYLANTA [Concomitant]
     Active Substance: ALUMINUM HYDROXIDE\DIMETHICONE\MAGNESIUM HYDROXIDE
  26. ZOFRAN [Concomitant]
     Active Substance: ONDANSETRON HYDROCHLORIDE
  27. ZYLOPRIM [Concomitant]
     Active Substance: ALLOPURINOL
  28. MAGNESIUM OXIDE [Concomitant]
     Active Substance: MAGNESIUM OXIDE
  29. COMPAZINE [Concomitant]
     Active Substance: PROCHLORPERAZINE MALEATE
  30. PROCARDIA [Concomitant]
     Active Substance: NIFEDIPINE
  31. BEMPEGALDESLEUKIN [Concomitant]
     Active Substance: BEMPEGALDESLEUKIN
  32. DELTASONE [Concomitant]
     Active Substance: PREDNISONE
  33. NORCO [Concomitant]
     Active Substance: ACETAMINOPHEN\HYDROCODONE BITARTRATE
  34. ATARAX [Concomitant]
     Active Substance: HYDROXYZINE HYDROCHLORIDE
  35. UBRELVY [Concomitant]
     Active Substance: UBROGEPANT
  36. DENTAGEL [Concomitant]
     Active Substance: SODIUM FLUORIDE
  37. VOLTAREN [Concomitant]
     Active Substance: DICLOFENAC SODIUM
  38. HYDROQUINONE [Concomitant]
     Active Substance: HYDROQUINONE
  39. RIBOCICLIB [Concomitant]
     Active Substance: RIBOCICLIB
  40. CAPECITABINE [Concomitant]
     Active Substance: CAPECITABINE
  41. DOCETAXEL [Concomitant]
     Active Substance: DOCETAXEL

REACTIONS (30)
  - Cerebral infarction [Unknown]
  - Cerebral artery embolism [Unknown]
  - Cerebrovascular accident [Unknown]
  - Metastases to lung [Unknown]
  - Alopecia [Unknown]
  - Hair colour changes [Unknown]
  - Diastolic dysfunction [Unknown]
  - Anxiety [Unknown]
  - Emotional disorder [Unknown]
  - Burning sensation [Unknown]
  - Migraine [Unknown]
  - Renal mass [Unknown]
  - Upper respiratory tract infection [Unknown]
  - Taste disorder [Unknown]
  - Pleural effusion [Unknown]
  - Pruritus [Unknown]
  - Rash [Unknown]
  - Dyspnoea [Unknown]
  - Weight decreased [Unknown]
  - Lymphadenopathy [Unknown]
  - Eating disorder [Unknown]
  - Superficial vein thrombosis [Recovered/Resolved]
  - Lymphoedema [Unknown]
  - Aspartate aminotransferase increased [Unknown]
  - Alanine aminotransferase increased [Unknown]
  - Diarrhoea [Unknown]
  - Arthralgia [Recovered/Resolved]
  - Nocturia [Unknown]
  - Atelectasis [Unknown]
  - Pulmonary vascular disorder [Unknown]

NARRATIVE: CASE EVENT DATE: 20221007
